FAERS Safety Report 9981242 (Version 1)
Quarter: 2014Q1

REPORT INFORMATION
  Report Type: Spontaneous
  Country: DE (occurrence: None)
  Receive Date: 20140305
  Receipt Date: 20140305
  Transmission Date: 20141002
  Serious: Yes (Other)
  Sender: FDA-Public Use
  Company Number: 2014HINLIT0175

PATIENT
  Age: 56 Year
  Sex: Male

DRUGS (5)
  1. EMTRICITABINE, TENOFOVIR DISOPROXIL FUMARATE [Suspect]
     Indication: PROPHYLAXIS AGAINST HIV INFECTION
  2. LOPINAVIR, RITONAVIR [Suspect]
     Indication: PROPHYLAXIS AGAINST HIV INFECTION
  3. RAMIPRIL (RAMIPRIL) [Concomitant]
  4. ACETYLSALICYLACID (ACETYLSALICYLACID) [Concomitant]
  5. SIMVASTATIN (SIMVASTATIN) [Concomitant]

REACTIONS (1)
  - Bicytopenia [None]
